FAERS Safety Report 7866347-1 (Version None)
Quarter: 2011Q4

REPORT INFORMATION
  Report Type: 
  Country: None (occurrence: None)
  Receive Date: 20111028
  Receipt Date: 20110524
  Transmission Date: 20120403
  Serious: No
  Sender: FDA-Public Use
  Company Number: US-GLAXOSMITHKLINE-A0930095A

PATIENT
  Age: 76 Year
  Sex: Female

DRUGS (3)
  1. NYSTATIN [Suspect]
  2. ADVAIR DISKUS 100/50 [Suspect]
     Indication: ASTHMA
     Dosage: 1PUFF TWICE PER DAY
     Route: 055
     Dates: start: 20100401
  3. CONCURRENT MEDICATIONS [Concomitant]

REACTIONS (4)
  - STOMATITIS [None]
  - BONE PAIN [None]
  - CANDIDIASIS [None]
  - PRURITUS [None]
